FAERS Safety Report 25213629 (Version 1)
Quarter: 2025Q2

REPORT INFORMATION
  Report Type: Spontaneous
  Country: US (occurrence: US)
  Receive Date: 20250418
  Receipt Date: 20250418
  Transmission Date: 20250716
  Serious: No
  Sender: SANOFI AVENTIS
  Company Number: US-SA-2025SA112692

PATIENT
  Age: 41 Year
  Sex: Male
  Weight: 75 kg

DRUGS (10)
  1. DUPIXENT [Suspect]
     Active Substance: DUPILUMAB
     Indication: Dermatitis atopic
     Dosage: 300 MG, QOW
     Route: 058
     Dates: start: 20250313
  2. ASPIRIN [Concomitant]
     Active Substance: ASPIRIN
  3. LATANOPROST [Concomitant]
     Active Substance: LATANOPROST
  4. SIMVASTATIN [Concomitant]
     Active Substance: SIMVASTATIN
  5. TRIAMCINOLONE [Concomitant]
     Active Substance: TRIAMCINOLONE
  6. UREA [Concomitant]
     Active Substance: UREA
  7. VERAPAMIL [Concomitant]
     Active Substance: VERAPAMIL HYDROCHLORIDE
  8. OZEMPIC [Concomitant]
     Active Substance: SEMAGLUTIDE
     Indication: Diabetes mellitus
  9. INSULIN NOS [Concomitant]
     Active Substance: INSULIN NOS
     Indication: Diabetes mellitus
  10. METFORMIN [Concomitant]
     Active Substance: METFORMIN HYDROCHLORIDE
     Indication: Diabetes mellitus

REACTIONS (4)
  - Weight decreased [Unknown]
  - Dermatitis [Unknown]
  - Rash macular [Unknown]
  - Eczema [Unknown]

NARRATIVE: CASE EVENT DATE: 20250101
